FAERS Safety Report 14913127 (Version 1)
Quarter: 2018Q2

REPORT INFORMATION
  Report Type: Spontaneous
  Country: IT (occurrence: IT)
  Receive Date: 20180501
  Receipt Date: 20180501
  Transmission Date: 20180711
  Serious: Yes (Life-Threatening, Hospitalization, Disabling, Other)
  Sender: FDA-Public Use
  Company Number: None

PATIENT
  Age: 36 Year
  Sex: Male
  Weight: 64 kg

DRUGS (6)
  1. B6 [Suspect]
     Active Substance: PYRIDOXINE HYDROCHLORIDE
  2. ESCITALOPRAM [Concomitant]
     Active Substance: ESCITALOPRAM OXALATE
  3. VITAMIN B12 [Concomitant]
     Active Substance: CYANOCOBALAMIN
  4. VITAMIN D [Suspect]
     Active Substance: CHOLECALCIFEROL
  5. B-9 [Concomitant]
  6. PROPECIA [Suspect]
     Active Substance: FINASTERIDE
     Indication: ANDROGENETIC ALOPECIA
     Route: 048

REACTIONS (14)
  - Fatigue [None]
  - Skin wrinkling [None]
  - Paraesthesia [None]
  - Tremor [None]
  - Panic attack [None]
  - Anxiety [None]
  - Restlessness [None]
  - Suicidal ideation [None]
  - Insomnia [None]
  - Apathy [None]
  - Depression [None]
  - Suicide attempt [None]
  - Dry skin [None]
  - Feeling abnormal [None]

NARRATIVE: CASE EVENT DATE: 20161228
